APPROVED DRUG PRODUCT: BACTOCILL IN PLASTIC CONTAINER
Active Ingredient: OXACILLIN SODIUM
Strength: EQ 40MG BASE/ML
Dosage Form/Route: INJECTABLE;INJECTION
Application: N050640 | Product #002
Applicant: BAXTER HEALTHCARE CORP
Approved: Oct 26, 1989 | RLD: Yes | RS: Yes | Type: RX